FAERS Safety Report 6693116-0 (Version None)
Quarter: 2010Q2

REPORT INFORMATION
  Report Type: 
  Country: None (occurrence: None)
  Receive Date: 20100422
  Receipt Date: 20100409
  Transmission Date: 20101027
  Serious: Yes (Life-Threatening, Hospitalization)
  Sender: FDA-Public Use
  Company Number: DE-MYLANLABS-2010S1001850

PATIENT
  Age: 70 Year
  Sex: Female
  Weight: 70 kg

DRUGS (15)
  1. ENALAPRIL MALEATE [Suspect]
     Indication: HYPERTENSION
     Route: 048
     Dates: end: 20090803
  2. TORASEMIDE [Interacting]
     Indication: HYPERTENSION
     Route: 048
     Dates: end: 20090804
  3. BISOPROLOL FUMARATE AND HYDROCHLOROTHIAZIDE [Interacting]
     Indication: HYPERTENSION
     Dosage: 1 DF= 5MG BISOPROLOL + 12.5MG HCT
     Route: 048
     Dates: end: 20090803
  4. SPIRONOLACTONE [Interacting]
     Indication: HYPERTENSION
     Route: 048
     Dates: end: 20090803
  5. DOXAZOSIN MESYLATE [Interacting]
     Indication: HYPERTENSION
     Route: 048
  6. VENLAFAXINE HCL [Interacting]
     Indication: DRUG USE FOR UNKNOWN INDICATION
     Route: 048
     Dates: end: 20090803
  7. DICLOFENAC [Interacting]
     Indication: PAIN
     Route: 048
     Dates: end: 20090803
  8. ENEAS [Interacting]
     Indication: HYPERTENSION
     Dosage: 1 DF= 10MG ENALAPRIL + 20MG NITRENDIPIN
     Route: 048
     Dates: end: 20090803
  9. DIGITOXIN TAB [Interacting]
     Indication: DRUG USE FOR UNKNOWN INDICATION
  10. METFORMIN [Concomitant]
     Indication: TYPE 2 DIABETES MELLITUS
     Route: 048
     Dates: end: 20090802
  11. XALATAN [Concomitant]
     Indication: GLAUCOMA
     Dosage: 1.5?G PRO AUGE
     Route: 057
  12. ACTRAPID [Concomitant]
     Indication: TYPE 2 DIABETES MELLITUS
     Dosage: DOSIS/APPLIKATION: 22/18/20 IU
     Route: 058
  13. LANTUS [Concomitant]
     Indication: TYPE 2 DIABETES MELLITUS
     Route: 058
  14. ACETYLSALICYLIC ACID [Concomitant]
     Indication: ISCHAEMIC HEART DISEASE PROPHYLAXIS
     Route: 048
     Dates: end: 20090805
  15. NIASPAN [Concomitant]
     Indication: HYPERLIPIDAEMIA
     Route: 048

REACTIONS (3)
  - BICYTOPENIA [None]
  - DRUG INTERACTION [None]
  - RENAL FAILURE ACUTE [None]
